FAERS Safety Report 9795120 (Version 1)
Quarter: 2014Q1

REPORT INFORMATION
  Report Type: Report from Study
  Country: US (occurrence: US)
  Receive Date: 20140103
  Receipt Date: 20140103
  Transmission Date: 20141002
  Serious: Yes (Other)
  Sender: FDA-Public Use
  Company Number: US-ROCHE-1325696

PATIENT
  Sex: Female

DRUGS (2)
  1. BEVACIZUMAB [Suspect]
     Indication: CERVIX CARCINOMA
     Dosage: 3 CYCLES DURING CHEMORADIATION
     Route: 042
  2. CISPLANTIN [Suspect]
     Indication: CERVIX CARCINOMA
     Route: 065

REACTIONS (5)
  - Blood disorder [Unknown]
  - Cardiovascular disorder [Unknown]
  - Gastrointestinal disorder [Unknown]
  - Nervous system disorder [Unknown]
  - Renal disorder [Unknown]
